FAERS Safety Report 10511974 (Version 2)
Quarter: 2014Q4

REPORT INFORMATION
  Report Type: Spontaneous
  Country: FR (occurrence: FR)
  Receive Date: 20141010
  Receipt Date: 20141215
  Transmission Date: 20150528
  Serious: Yes (Other)
  Sender: FDA-Public Use
  Company Number: FR-PFIZER INC-2014273042

PATIENT
  Age: 65 Year
  Sex: Female

DRUGS (10)
  1. LEVOTHYROX [Concomitant]
     Active Substance: LEVOTHYROXINE
     Dosage: 175 ?G, DAILY
  2. MEDIATENSYL [Concomitant]
     Active Substance: URAPIDIL
  3. DAFALGAN CODEINE [Concomitant]
     Active Substance: ACETAMINOPHEN\CODEINE PHOSPHATE
     Dosage: UNK, AS NEEDED
  4. INLYTA [Suspect]
     Active Substance: AXITINIB
     Dosage: 5 MG, 2X/DAY (5 MG IN THE MORNING AND IN THE EVENING)
     Dates: start: 2014
  5. ESIDREX [Concomitant]
     Active Substance: HYDROCHLOROTHIAZIDE
  6. NEBIVOLOL [Concomitant]
     Active Substance: NEBIVOLOL
  7. ESOMEPRAZOLE [Concomitant]
     Active Substance: ESOMEPRAZOLE
  8. LOPERAMIDE [Concomitant]
     Active Substance: LOPERAMIDE
  9. INLYTA [Suspect]
     Active Substance: AXITINIB
     Indication: RENAL CANCER METASTATIC
     Dosage: 5 MG, 2X/DAY
     Route: 048
     Dates: start: 20140805, end: 20140903
  10. VOGALENE [Concomitant]
     Active Substance: METOPIMAZINE

REACTIONS (4)
  - Palmar-plantar erythrodysaesthesia syndrome [Recovered/Resolved]
  - Dysphonia [Not Recovered/Not Resolved]
  - Hepatitis cholestatic [Recovering/Resolving]
  - Asthenia [Not Recovered/Not Resolved]

NARRATIVE: CASE EVENT DATE: 20140819
